FAERS Safety Report 7826437-6 (Version None)
Quarter: 2011Q4

REPORT INFORMATION
  Report Type: 
  Country: None (occurrence: None)
  Receive Date: 20111020
  Receipt Date: 20110928
  Transmission Date: 20120403
  Serious: Yes (Disabling)
  Sender: FDA-Public Use
  Company Number: AU-NAPPMUNDI-GBR-2011-0008828

PATIENT

DRUGS (3)
  1. METHOTREXATE [Suspect]
  2. ALCOHOL [Concomitant]
  3. OXYCODONE HCL [Suspect]
     Indication: PRODUCT USED FOR UNKNOWN INDICATION

REACTIONS (2)
  - DEAFNESS [None]
  - MACROCYTOSIS [None]
